FAERS Safety Report 10952336 (Version 1)
Quarter: 2015Q1

REPORT INFORMATION
  Report Type: Spontaneous
  Country: US (occurrence: None)
  Receive Date: 20150323
  Receipt Date: 20150323
  Transmission Date: 20150721
  Serious: No
  Sender: FDA-Public Use
  Company Number: VIT-2014-02680

PATIENT
  Age: 48 Year
  Sex: Male
  Weight: 115 kg

DRUGS (13)
  1. SENSIPAR (CINACALCET HYDROCHLORIDE) [Concomitant]
  2. VELPHORO [Suspect]
     Active Substance: FERRIC OXYHYDROXIDE
     Indication: HYPERPHOSPHATAEMIA
     Dosage: 3 IN 1 D, ORAL
     Route: 048
     Dates: start: 201407, end: 20141016
  3. LOVASTATIN. [Concomitant]
     Active Substance: LOVASTATIN
  4. NEPHRO-VITE (ASCORBIC ACID) [Concomitant]
  5. PANTOPRAZOLE [Concomitant]
     Active Substance: PANTOPRAZOLE SODIUM
  6. CALCITRIOL. [Concomitant]
     Active Substance: CALCITRIOL
  7. GABAPENTIN. [Concomitant]
     Active Substance: GABAPENTIN
  8. GENTAMICIN (OINTMENT) [Concomitant]
  9. RENVELA (SEVELAMER CARBONATE) (TABLET) [Concomitant]
  10. ACETYLSALICYLIC ACID [Concomitant]
     Active Substance: ASPIRIN
  11. FLUTICASONE (SUSPENSION) (FLUTICASONE) [Concomitant]
  12. ERGOCALCIFEROL (CAPSULE) [Concomitant]
  13. LEVOTHYROXINE [Concomitant]
     Active Substance: LEVOTHYROXINE

REACTIONS (2)
  - Breath odour [None]
  - Flatulence [None]

NARRATIVE: CASE EVENT DATE: 20141216
